FAERS Safety Report 7131015-0 (Version None)
Quarter: 2010Q4

REPORT INFORMATION
  Report Type: 
  Country: None (occurrence: None)
  Receive Date: 20101201
  Receipt Date: 20101116
  Transmission Date: 20110411
  Serious: Yes (Hospitalization)
  Sender: FDA-Public Use
  Company Number: B0668370A

PATIENT
  Age: 2 Year
  Sex: Male

DRUGS (2)
  1. AUGMENTIN [Suspect]
     Dosage: 1Z PER DAY
     Route: 048
     Dates: start: 20100411, end: 20100411
  2. DALSY [Concomitant]

REACTIONS (5)
  - ANAPHYLACTIC REACTION [None]
  - DYSPNOEA [None]
  - FALL [None]
  - SWELLING FACE [None]
  - URTICARIA [None]
